FAERS Safety Report 5905261-5 (Version None)
Quarter: 2008Q4

REPORT INFORMATION
  Report Type: 
  Country: None (occurrence: None)
  Receive Date: 20081001
  Receipt Date: 20080925
  Transmission Date: 20090506
  Serious: Yes (Death, Hospitalization)
  Sender: FDA-Public Use
  Company Number: GB-AMGEN-US294310

PATIENT
  Age: 49 Year
  Sex: Female

DRUGS (16)
  1. ENBREL [Suspect]
     Indication: RHEUMATOID ARTHRITIS
     Route: 065
     Dates: start: 20031001
  2. LEFLUNOMIDE [Suspect]
     Indication: RHEUMATOID ARTHRITIS
     Dosage: 20MG, FREQUENCY UNKNOWN
     Route: 048
     Dates: start: 20031101
  3. BENDROFLUAZIDE [Concomitant]
     Indication: BLOOD PRESSURE INCREASED
     Dosage: 2.5MG, FREQUENCY UNKNOWN
     Route: 048
     Dates: start: 20031201
  4. CALCIUM CARBONATE [Concomitant]
     Indication: PROPHYLAXIS
     Route: 048
     Dates: start: 20051101
  5. CITALOPRAM [Concomitant]
     Indication: AFFECTIVE DISORDER
     Dosage: 20MG, FREQUENCY UNKNOWN
     Route: 048
     Dates: start: 20061206
  6. DICLOFENAC SODIUM [Concomitant]
     Indication: RHEUMATOID ARTHRITIS
     Dosage: 1200MG, FREQUENCY UNKNOWN
     Route: 048
  7. DOXAZOSIN MESYLATE [Concomitant]
     Indication: BLOOD PRESSURE INCREASED
     Dosage: 4MG, FREQUENCY UNKNOWN
     Route: 048
     Dates: start: 20041201
  8. FUROSEMIDE [Concomitant]
     Indication: DYSPNOEA
     Dosage: 20MG, FREQUENCY UNKNOWN
     Route: 048
     Dates: start: 20061222
  9. MISOPROSTOL [Concomitant]
     Indication: RHEUMATOID ARTHRITIS
     Dosage: UNKNOWN
     Route: 048
  10. OMEPRAZOLE [Concomitant]
     Indication: PROPHYLAXIS
     Dosage: 10MG, FREQUENCY UNKNOWN
     Route: 048
     Dates: start: 20031201
  11. PANADEINE [Concomitant]
     Indication: RHEUMATOID ARTHRITIS
     Dosage: UNKNOWN
     Route: 048
     Dates: start: 20060601
  12. PREDNISOLONE [Concomitant]
     Indication: RHEUMATOID ARTHRITIS
     Dosage: 10MG, FREQUENCY UNKNOWN
     Route: 048
     Dates: start: 20031201
  13. PREGADAY [Concomitant]
     Route: 048
     Dates: start: 20031201
  14. PROPRANOLOL [Concomitant]
     Indication: BLOOD PRESSURE INCREASED
     Dosage: 160MG, FREQUENCY UNKNOWN
     Route: 048
     Dates: start: 20010301
  15. RAMIPRIL [Concomitant]
     Indication: BLOOD PRESSURE INCREASED
     Dosage: 2.5MGM FREQUENCY UNKNOWN
     Route: 048
     Dates: start: 20040401
  16. TRAMADOL HCL [Concomitant]
     Indication: RHEUMATOID ARTHRITIS
     Dosage: UNKNOWN
     Route: 048
     Dates: start: 20031201

REACTIONS (4)
  - BETA HAEMOLYTIC STREPTOCOCCAL INFECTION [None]
  - CARDIO-RESPIRATORY ARREST [None]
  - PNEUMONIA [None]
  - SEPTIC SHOCK [None]
